FAERS Safety Report 5293863-1 (Version None)
Quarter: 2007Q2

REPORT INFORMATION
  Report Type: 
  Country: None (occurrence: None)
  Receive Date: 20070405
  Receipt Date: 20070328
  Transmission Date: 20071010
  Serious: Yes (Hospitalization)
  Sender: FDA-Public Use
  Company Number: 2007-01634

PATIENT
  Age: 27 Year
  Sex: Female

DRUGS (3)
  1. NOVAREL(WATSON LABORATORIES)(CHORIOIC GONADOTROPIN) INJECTION, 10,000U [Suspect]
     Indication: OVARIAN DISORDER
     Dosage: 5000 IU, UNK
     Dates: start: 20070101
  2. FOLLICLE-STIMULATING HORMONE, HUMAN (UROFOLLITROPIN) [Suspect]
     Indication: OVARIAN DISORDER
     Dosage: 75 IU, X 15 DAYS, UNK
     Dates: start: 20070101
  3. GONADOTROPIN RELEASING HORMONE (GNRH) [Suspect]
     Dosage: 3MG, UNK
     Dates: start: 20070101

REACTIONS (4)
  - ABORTION SPONTANEOUS [None]
  - CARDIAC TAMPONADE [None]
  - DRUG EXPOSURE DURING PREGNANCY [None]
  - OVARIAN HYPERSTIMULATION SYNDROME [None]
